FAERS Safety Report 7782301-2 (Version None)
Quarter: 2011Q3

REPORT INFORMATION
  Report Type: 
  Country: None (occurrence: None)
  Receive Date: 20110927
  Receipt Date: 20110914
  Transmission Date: 20111222
  Serious: Yes (Death, Hospitalization, Other)
  Sender: FDA-Public Use
  Company Number: AT-ELI_LILLY_AND_COMPANY-AT201108008599

PATIENT
  Age: 41 Year
  Sex: Female
  Weight: 135 kg

DRUGS (23)
  1. TRUXAL [Concomitant]
     Dosage: 100 MG, QD
     Dates: start: 20110309, end: 20110317
  2. MENCORD [Concomitant]
     Dosage: 80 MG, QD
     Dates: start: 20110309, end: 20110309
  3. NOMEXOR [Concomitant]
     Dosage: UNK UNK, QD
     Dates: start: 20110301
  4. NOMEXOR [Concomitant]
     Dosage: 5 MG, QD
     Dates: start: 20110309, end: 20110309
  5. NOMEXOR [Concomitant]
     Dosage: 5 MG, QD
     Dates: start: 20110310, end: 20110301
  6. DIABETEX [Concomitant]
     Dosage: 1000 MG, QD
     Dates: start: 20110309, end: 20110309
  7. PSYCHOPAX [Concomitant]
     Dosage: UNK, OTHER 5 TIMES A DAY
     Dates: start: 20110301
  8. ALCOHOL [Concomitant]
  9. NORDAZEPAM [Concomitant]
  10. MENCORD [Concomitant]
     Dosage: 80 MG, QD
     Dates: start: 20110310
  11. PSYCHOPAX [Concomitant]
     Indication: RESTLESSNESS
     Dosage: UNK, BID
     Dates: start: 20110309, end: 20110301
  12. DIABETEX [Concomitant]
     Dosage: 1000 MG, QD
     Dates: start: 20110310
  13. ZYPREXA [Suspect]
     Dosage: 25 MG, QD
     Route: 048
     Dates: start: 20110315
  14. HALDOL [Concomitant]
     Dosage: 3 DF, UNK
     Dates: start: 20110309
  15. GEWACALM [Concomitant]
     Dosage: 1 DF, UNK
     Route: 042
     Dates: start: 20110309
  16. ABILIFY [Concomitant]
     Dosage: 35 MG, QD
     Dates: start: 20110310, end: 20110301
  17. GEWACALM [Concomitant]
     Dosage: 1 DF, UNK
     Route: 042
     Dates: start: 20110309, end: 20110309
  18. SANDOPARIN [Concomitant]
     Dosage: 1 DF, UNK
     Dates: start: 20110309
  19. AKINETON [Concomitant]
     Indication: EXTRAPYRAMIDAL DISORDER
     Dosage: 2 MG, PRN
     Dates: start: 20110309
  20. ZYPREXA [Suspect]
     Dosage: 10 MG, QD
     Route: 048
     Dates: start: 20110310, end: 20110301
  21. HALDOL [Concomitant]
     Dosage: 3 DF, UNK
     Dates: start: 20110309, end: 20110309
  22. ABILIFY [Concomitant]
     Dosage: 25 MG, QD
     Dates: start: 20110309, end: 20110309
  23. NOZINAN [Concomitant]
     Dosage: 2.5 ML, UNK

REACTIONS (25)
  - HAEMOPTYSIS [None]
  - ABDOMINAL WALL HAEMORRHAGE [None]
  - CARDIAC FAILURE [None]
  - PULMONARY CONGESTION [None]
  - CARDIAC FAILURE CONGESTIVE [None]
  - CHOLELITHIASIS [None]
  - BRONCHIOLITIS [None]
  - PANCREATIC DISORDER [None]
  - PNEUMONIA [None]
  - BRONCHOPNEUMONIA [None]
  - HEPATIC STEATOSIS [None]
  - ELECTROCARDIOGRAM QT PROLONGED [None]
  - OVERDOSE [None]
  - SPLEEN DISORDER [None]
  - BRONCHITIS [None]
  - ARTERIAL DISORDER [None]
  - ANGINA PECTORIS [None]
  - DILATATION VENTRICULAR [None]
  - SUDDEN DEATH [None]
  - EPISTAXIS [None]
  - DRUG SCREEN POSITIVE [None]
  - TRACHEITIS [None]
  - DYSPNOEA [None]
  - HEPATOMEGALY [None]
  - HEPATIC CONGESTION [None]
